FAERS Safety Report 5432326-7 (Version None)
Quarter: 2007Q3

REPORT INFORMATION
  Report Type: 
  Country: None (occurrence: None)
  Receive Date: 20070831
  Receipt Date: 20070828
  Transmission Date: 20080115
  Serious: Yes (Hospitalization)
  Sender: FDA-Public Use
  Company Number: PHRM2007FR01849

PATIENT
  Age: 60 Year
  Sex: Male

DRUGS (7)
  1. VOLTAREN [Suspect]
     Indication: TENDONITIS
     Dosage: UNK, PRN
     Route: 061
     Dates: start: 20070330, end: 20070621
  2. AMLODIPINE BESYLATE [Concomitant]
  3. LODOZ [Concomitant]
  4. APRANAX [Concomitant]
     Dosage: STOPPED BEFORE REACTION ONSET
  5. DI-ANTALVIC [Concomitant]
  6. ACETAMINOPHEN [Concomitant]
  7. DESLORATADINE [Concomitant]

REACTIONS (10)
  - BIOPSY SKIN ABNORMAL [None]
  - CUTANEOUS VASCULITIS [None]
  - ECZEMA [None]
  - LYMPHOCYTIC INFILTRATION [None]
  - PARAKERATOSIS [None]
  - RASH GENERALISED [None]
  - RASH PAPULAR [None]
  - SKIN INFLAMMATION [None]
  - SKIN OEDEMA [None]
  - TOXIC SKIN ERUPTION [None]
